FAERS Safety Report 15688822 (Version 1)
Quarter: 2018Q4

REPORT INFORMATION
  Report Type: Spontaneous
  Country: FR (occurrence: FR)
  Receive Date: 20181205
  Receipt Date: 20181205
  Transmission Date: 20190205
  Serious: Yes (Hospitalization)
  Sender: FDA-Public Use
  Company Number: FR-AUROBINDO-AUR-APL-2018-058583

PATIENT
  Age: 52 Year
  Sex: Female

DRUGS (9)
  1. SIMVASTATIN. [Suspect]
     Active Substance: SIMVASTATIN
     Indication: DYSLIPIDAEMIA
     Dosage: 20 MILLIGRAM, ONCE A DAY
     Route: 048
     Dates: end: 20170527
  2. FLUOXETINE [Concomitant]
     Active Substance: FLUOXETINE HYDROCHLORIDE
     Indication: PRODUCT USED FOR UNKNOWN INDICATION
     Dosage: UNK
     Route: 065
  3. STAGID [Concomitant]
     Active Substance: METFORMIN PAMOATE
     Indication: PRODUCT USED FOR UNKNOWN INDICATION
     Dosage: UNK
     Route: 065
  4. TELMISARTAN. [Concomitant]
     Active Substance: TELMISARTAN
     Indication: PRODUCT USED FOR UNKNOWN INDICATION
     Dosage: UNK
     Route: 065
  5. BACLOFENE [Concomitant]
     Active Substance: BACLOFEN
     Indication: PRODUCT USED FOR UNKNOWN INDICATION
     Dosage: UNK
     Route: 065
  6. FLECTOR                            /00372302/ [Suspect]
     Active Substance: DICLOFENAC SODIUM
     Indication: BACK PAIN
     Dosage: UNK
     Route: 003
     Dates: start: 20170523, end: 20170526
  7. INEXIUM                            /01479302/ [Concomitant]
     Active Substance: ESOMEPRAZOLE MAGNESIUM
     Indication: PRODUCT USED FOR UNKNOWN INDICATION
     Dosage: UNK
     Route: 065
  8. QUETIAPINE ARROW LP 50 MG PROLONGED RELEASE TABLET [Suspect]
     Active Substance: QUETIAPINE
     Indication: MIXED ANXIETY AND DEPRESSIVE DISORDER
     Dosage: 50 MILLIGRAM, ONCE A DAY
     Route: 048
     Dates: start: 20170518, end: 20170525
  9. CORGARD [Concomitant]
     Active Substance: NADOLOL
     Indication: PRODUCT USED FOR UNKNOWN INDICATION
     Dosage: UNK
     Route: 065

REACTIONS (5)
  - Rash generalised [Recovered/Resolved]
  - Pruritus [Recovered/Resolved]
  - Erythema [Recovered/Resolved]
  - Eczema [Recovered/Resolved]
  - Face oedema [Recovered/Resolved]

NARRATIVE: CASE EVENT DATE: 20170526
